FAERS Safety Report 4859095-3 (Version None)
Quarter: 2005Q4

REPORT INFORMATION
  Report Type: 
  Country: None (occurrence: None)
  Receive Date: 20051219
  Receipt Date: 20050915
  Transmission Date: 20060501
  Serious: No
  Sender: FDA-Public Use
  Company Number: US-GLAXOSMITHKLINE-A0574361A

PATIENT
  Age: 55 Year
  Sex: Female

DRUGS (23)
  1. NICODERM CQ [Suspect]
     Dates: end: 20050914
  2. NICODERM CQ [Suspect]
  3. LIDODERM PATCH [Concomitant]
  4. SOMA [Concomitant]
  5. CARDIZEM [Concomitant]
  6. PREVACID [Concomitant]
  7. LIPITOR [Concomitant]
  8. ZOLOFT [Concomitant]
  9. PLAVIX [Concomitant]
  10. MAGNESIUM OXIDE [Concomitant]
  11. SEREVENT [Concomitant]
  12. REGLAN [Concomitant]
  13. ATENOLOL [Concomitant]
  14. ISOSORBIDE [Concomitant]
  15. TRAZODONE HCL [Concomitant]
  16. SALT [Concomitant]
  17. CALCIUM GLUCONATE [Concomitant]
  18. PHENYLPROPANOLAMINE HCL W/ GUAIFENESIN [Concomitant]
  19. NITROGLYCERIN [Concomitant]
  20. XANAX [Concomitant]
  21. VICODIN [Concomitant]
  22. ALBUTEROL [Concomitant]
  23. NEBULIZER [Concomitant]

REACTIONS (6)
  - APPLICATION SITE ERYTHEMA [None]
  - APPLICATION SITE IRRITATION [None]
  - APPLICATION SITE PRURITUS [None]
  - APPLICATION SITE SWELLING [None]
  - HEADACHE [None]
  - NAUSEA [None]
